FAERS Safety Report 21678374 (Version 1)
Quarter: 2022Q4

REPORT INFORMATION
  Report Type: Spontaneous
  Country: IT (occurrence: IT)
  Receive Date: 20221203
  Receipt Date: 20221203
  Transmission Date: 20230113
  Serious: Yes (Hospitalization)
  Sender: FDA-Public Use
  Company Number: None

PATIENT
  Age: 62 Year
  Sex: Male

DRUGS (6)
  1. CLOPIDOGREL [Interacting]
     Active Substance: CLOPIDOGREL BISULFATE
     Indication: Product used for unknown indication
     Dosage: UNIT DOSE: 75 MG , FREQUENCY TIME : 24 HOURS
  2. ELIQUIS [Interacting]
     Active Substance: APIXABAN
     Indication: Atrial fibrillation
     Dosage: LAST ADMINISTRATION 08/10/22 AT 9.30, UNIT DOSE : 5 MG, FREQUENCY TIME : 12 HOURS, THERAPY START DAT
     Dates: end: 20221008
  3. ENTRESTO [Concomitant]
     Active Substance: SACUBITRIL\VALSARTAN
     Indication: Product used for unknown indication
     Dosage: UNIT DOSE : 100 MG, FREQUENCY TIME : 24 HOURS
  4. AMIODARONE [Concomitant]
     Active Substance: AMIODARONE
     Indication: Product used for unknown indication
     Dosage: UNIT DOSE : 200 MG, FREQUENCY TIME : 24 HOURS
  5. BISOPROLOL [Concomitant]
     Active Substance: BISOPROLOL
     Indication: Product used for unknown indication
     Dosage: UNIT DOSE : 2.5 MG, FREQUENCY TIME : 24 HOURS
  6. EZETIMIBE\ROSUVASTATIN ZINC [Concomitant]
     Active Substance: EZETIMIBE\ROSUVASTATIN ZINC
     Indication: Product used for unknown indication
     Dosage: UNIT DOSE : 30 MG, FREQUENCY TIME : 24 HOURS

REACTIONS (4)
  - Ecchymosis [Recovering/Resolving]
  - Haemorrhage [Recovered/Resolved]
  - Oedema [Recovering/Resolving]
  - Drug interaction [Unknown]

NARRATIVE: CASE EVENT DATE: 20221008
